FAERS Safety Report 8069651-X (Version None)
Quarter: 2012Q1

REPORT INFORMATION
  Report Type: 
  Country: None (occurrence: None)
  Receive Date: 20120119
  Receipt Date: 20120104
  Transmission Date: 20120608
  Serious: Yes (Hospitalization, Other)
  Sender: FDA-Public Use
  Company Number: 2011-01175

PATIENT
  Age: 56 Year
  Sex: Female
  Weight: 81.6475 kg

DRUGS (6)
  1. LITHIUM (CAPSULES) [Concomitant]
  2. LISINOPRIL [Suspect]
     Indication: HYPERTENSION
     Dosage: 10 MG (10 MG, 1 IN 1 D), PER ORAL
     Route: 048
     Dates: start: 20110303, end: 20110505
  3. MEDROXYPROGESTERONE (TABLETS) [Concomitant]
  4. ESTRADIOL PATCH [Concomitant]
  5. PAROXETINE (PAXIL) (TABLETS) [Concomitant]
  6. DICYCLOMINE (CAPSULES) [Concomitant]

REACTIONS (6)
  - DRUG HYPERSENSITIVITY [None]
  - RASH [None]
  - PHOTOPHOBIA [None]
  - SWELLING [None]
  - BLISTER [None]
  - SOMNOLENCE [None]
